FAERS Safety Report 4764457-9 (Version None)
Quarter: 2005Q3

REPORT INFORMATION
  Report Type: 
  Country: None (occurrence: None)
  Receive Date: 20050906
  Receipt Date: 20050824
  Transmission Date: 20060218
  Serious: Yes (Life-Threatening, Hospitalization, Other)
  Sender: FDA-Public Use
  Company Number: HQWYE533626JUL05

PATIENT
  Age: 24 Year
  Sex: Male

DRUGS (1)
  1. RAPAMUNE [Suspect]
     Indication: HEART TRANSPLANT
     Dosage: 3 MG 1X PER 1 DAY
     Route: 048
     Dates: start: 20050706

REACTIONS (1)
  - CONVULSION [None]
